FAERS Safety Report 17933812 (Version 14)
Quarter: 2022Q1

REPORT INFORMATION
  Report Type: Report from Study
  Country: CA (occurrence: CA)
  Receive Date: 20200623
  Receipt Date: 20220331
  Transmission Date: 20220423
  Serious: Yes (Hospitalization, Other)
  Sender: FDA-Public Use
  Company Number: PHHY2018CA198694

PATIENT
  Age: 75 Year
  Sex: Female

DRUGS (7)
  1. SANDOSTATIN LAR DEPOT [Suspect]
     Active Substance: OCTREOTIDE ACETATE
     Indication: Carcinoid tumour
     Dosage: 20 MG, QMO (EVERY 4 WEEKS)
     Route: 030
     Dates: start: 20181205
  2. SANDOSTATIN LAR DEPOT [Suspect]
     Active Substance: OCTREOTIDE ACETATE
  3. SANDOSTATIN LAR DEPOT [Suspect]
     Active Substance: OCTREOTIDE ACETATE
  4. SANDOSTATIN [Suspect]
     Active Substance: OCTREOTIDE ACETATE
     Indication: Carcinoid tumour
     Dosage: 50 UG, BID (FOR FOUR WEEKS)
     Route: 058
     Dates: start: 20181114
  5. SANDOSTATIN [Suspect]
     Active Substance: OCTREOTIDE ACETATE
  6. SANDOSTATIN [Suspect]
     Active Substance: OCTREOTIDE ACETATE
  7. CYPROHEPTADINE HYDROCHLORIDE [Suspect]
     Active Substance: CYPROHEPTADINE HYDROCHLORIDE
     Indication: Lung neoplasm
     Dosage: UNK UNK, TID
     Route: 048
     Dates: start: 20190329

REACTIONS (16)
  - Pneumonia [Unknown]
  - COVID-19 [Unknown]
  - Malaise [Unknown]
  - Lung neoplasm [Unknown]
  - Colon cancer [Unknown]
  - Second primary malignancy [Unknown]
  - Oxygen consumption increased [Unknown]
  - Migraine [Recovered/Resolved]
  - Blood urine present [Unknown]
  - Subcutaneous abscess [Unknown]
  - Cystitis [Unknown]
  - Back pain [Recovering/Resolving]
  - Haemoglobin decreased [Unknown]
  - Lower respiratory tract infection [Unknown]
  - Mass [Unknown]
  - Anxiety [Unknown]

NARRATIVE: CASE EVENT DATE: 20190329
